FAERS Safety Report 5370530-7 (Version None)
Quarter: 2007Q2

REPORT INFORMATION
  Report Type: 
  Country: None (occurrence: None)
  Receive Date: 20070626
  Receipt Date: 20070612
  Transmission Date: 20071010
  Serious: Yes (Other)
  Sender: FDA-Public Use
  Company Number: CA-ELI_LILLY_AND_COMPANY-CA200706003014

PATIENT
  Age: 56 Year
  Sex: Female

DRUGS (8)
  1. FORTEO [Suspect]
     Indication: OSTEOPOROSIS
     Dosage: 20 UG, DAILY (1/D)
     Route: 058
     Dates: start: 20060814, end: 20070506
  2. FOLIC ACID [Concomitant]
  3. CARBOCAL D [Concomitant]
  4. K-DUR 10 [Concomitant]
  5. TENORMIN [Concomitant]
  6. FENTANYL [Concomitant]
     Dosage: UNK, AS NEEDED
  7. METHOTREXATE [Concomitant]
  8. MEDROL [Concomitant]

REACTIONS (1)
  - SARCOMA [None]
